FAERS Safety Report 6816984-8 (Version None)
Quarter: 2010Q3

REPORT INFORMATION
  Report Type: 
  Country: None (occurrence: None)
  Receive Date: 20100706
  Receipt Date: 20100625
  Transmission Date: 20110219
  Serious: Yes (Other)
  Sender: FDA-Public Use
  Company Number: JP-SANOFI-AVENTIS-2010SA036836

PATIENT
  Age: 50 Year
  Sex: Male

DRUGS (3)
  1. OXALIPLATIN [Suspect]
     Indication: COLON CANCER
     Route: 041
     Dates: start: 20100323, end: 20100323
  2. OXALIPLATIN [Suspect]
     Route: 041
     Dates: start: 20100612, end: 20100612
  3. XELODA [Suspect]
     Indication: COLON CANCER
     Route: 048
     Dates: start: 20100323, end: 20100612

REACTIONS (1)
  - HYPERAMMONAEMIA [None]
